FAERS Safety Report 20239359 (Version 1)
Quarter: 2021Q4

REPORT INFORMATION
  Report Type: Report from Study
  Country: US (occurrence: US)
  Receive Date: 20211228
  Receipt Date: 20211228
  Transmission Date: 20220303
  Serious: Yes (Hospitalization)
  Sender: FDA-Public Use
  Company Number: US-MYLANLABS-2021M1096119

PATIENT
  Age: 65 Year
  Sex: Male

DRUGS (5)
  1. TRIAMCINOLONE [Suspect]
     Active Substance: TRIAMCINOLONE
     Indication: Endocrine ophthalmopathy
     Dosage: INTRAORBITAL
  2. PREDNISONE [Suspect]
     Active Substance: PREDNISONE
     Indication: Endocrine ophthalmopathy
     Dosage: UNK
     Route: 048
  3. METHYLPREDNISOLONE [Suspect]
     Active Substance: METHYLPREDNISOLONE
     Indication: Endocrine ophthalmopathy
     Dosage: UNK
     Route: 042
  4. TEPROTUMUMAB [Concomitant]
     Active Substance: TEPROTUMUMAB
     Indication: Endocrine ophthalmopathy
     Dosage: 10 MILLIGRAM/KILOGRAM, INFUSION
  5. TEPROTUMUMAB [Concomitant]
     Active Substance: TEPROTUMUMAB
     Dosage: 20 MILLIGRAM/KILOGRAM, Q3W, INFUSION

REACTIONS (2)
  - Drug ineffective [Unknown]
  - Off label use [Unknown]
